FAERS Safety Report 8890996 (Version 9)
Quarter: 2013Q1

REPORT INFORMATION
  Report Type: Spontaneous
  Country: US (occurrence: US)
  Receive Date: 20121107
  Receipt Date: 20130122
  Transmission Date: 20140127
  Serious: No
  Sender: FDA-Public Use
  Company Number: US-009507513-1211USA000270

PATIENT
  Sex: Female

DRUGS (6)
  1. PEG-INTRON [Suspect]
     Indication: HEPATITIS C
     Dosage: 0.5 ML, UNK
     Dates: start: 20121016, end: 20121030
  2. PEG-INTRON [Suspect]
     Dosage: 0.3 ML, UNK
     Dates: start: 20121030
  3. PEG-INTRON [Suspect]
     Dosage: 0.4 ML, UNK
  4. PEG-INTRON [Suspect]
     Dosage: 120 MCG PER 0.2 ML PER WEEK
  5. RIBAVIRIN [Suspect]
     Indication: HEPATITIS C
     Dosage: UNK ML, UNK
     Route: 048
     Dates: start: 20121016
  6. VICTRELIS [Suspect]
     Indication: HEPATITIS C
     Dosage: UNK
     Route: 048
     Dates: start: 20130108

REACTIONS (21)
  - White blood cell count decreased [Unknown]
  - Immune system disorder [Unknown]
  - Fatigue [Unknown]
  - Somnolence [Unknown]
  - White blood cell count decreased [Unknown]
  - Fatigue [Unknown]
  - White blood cell count decreased [Unknown]
  - White blood cell count decreased [Unknown]
  - Cyst [Unknown]
  - Vulvovaginal mycotic infection [Unknown]
  - Eye infection [Unknown]
  - Confusional state [Not Recovered/Not Resolved]
  - Neck pain [Not Recovered/Not Resolved]
  - Pain [Unknown]
  - Back pain [Unknown]
  - White blood cell count decreased [Unknown]
  - Dysgeusia [Unknown]
  - Skin infection [Unknown]
  - White blood cell count decreased [Unknown]
  - Leukopenia [Unknown]
  - Decreased appetite [Unknown]
